FAERS Safety Report 5191433-7 (Version None)
Quarter: 2006Q4

REPORT INFORMATION
  Report Type: 
  Country: None (occurrence: None)
  Receive Date: 20061219
  Receipt Date: 20061205
  Transmission Date: 20070319
  Serious: Yes (Other)
  Sender: FDA-Public Use
  Company Number: US012207

PATIENT
  Age: 53 Year
  Sex: Female

DRUGS (5)
  1. ACTIQ [Suspect]
     Indication: BACK PAIN
     Dosage: 200 UG UNK BUCCAL
     Route: 002
     Dates: start: 20030101
  2. ACTIQ [Suspect]
     Indication: BACK PAIN
     Dosage: 600 UG UNK BUCCAL
     Route: 002
  3. DURAGESIC-100 [Concomitant]
  4. METHADONE HCL [Concomitant]
  5. OXYCODONE HCL [Concomitant]

REACTIONS (1)
  - DENTAL CARIES [None]
